FAERS Safety Report 6120269-5 (Version None)
Quarter: 2009Q1

REPORT INFORMATION
  Report Type: 
  Country: None (occurrence: None)
  Receive Date: 20090312
  Receipt Date: 20090225
  Transmission Date: 20090719
  Serious: Yes (Other)
  Sender: FDA-Public Use
  Company Number: BAI_00007_2009

PATIENT
  Sex: Female

DRUGS (2)
  1. ALBUTEROL SULFATE [Suspect]
     Indication: ASTHMA
     Dosage: 1-2 TIMES PER DAY RESPIRATORY ( INHALATION)
     Route: 055
     Dates: start: 20090201, end: 20090224
  2. ALBUTEROL SULFATE [Suspect]
     Indication: ASTHMA
     Dosage: 1-2 TIMES PER DAY RESPIRATORY (INHALATION)
     Route: 055
     Dates: start: 20090224

REACTIONS (5)
  - BURNING SENSATION [None]
  - EYE SWELLING [None]
  - LUNG DISORDER [None]
  - PRODUCT QUALITY ISSUE [None]
  - THROAT IRRITATION [None]
